FAERS Safety Report 25803585 (Version 1)
Quarter: 2025Q3

REPORT INFORMATION
  Report Type: Spontaneous
  Country: CA (occurrence: CA)
  Receive Date: 20250915
  Receipt Date: 20250915
  Transmission Date: 20251021
  Serious: Yes (Other)
  Sender: OTSUKA
  Company Number: CA-MMM-Otsuka-LFQO1UJ2

PATIENT
  Age: 77 Year
  Sex: Female

DRUGS (2)
  1. ARIPIPRAZOLE [Suspect]
     Active Substance: ARIPIPRAZOLE
     Indication: Chronic tic disorder
     Route: 065
  2. TOPIRAMATE [Suspect]
     Active Substance: TOPIRAMATE
     Indication: Chronic tic disorder
     Dosage: 25 MG, BID (ONCE IN EVERY 0.5 DAYS/12 HOURS)
     Route: 065

REACTIONS (5)
  - Parkinson^s disease [Unknown]
  - Cognitive disorder [Unknown]
  - Dyskinesia [Unknown]
  - Restlessness [Unknown]
  - Drug ineffective [Unknown]
